FAERS Safety Report 9570223 (Version 1)
Quarter: 2013Q3

REPORT INFORMATION
  Report Type: Spontaneous
  Country: US (occurrence: US)
  Receive Date: 20130930
  Receipt Date: 20130930
  Transmission Date: 20140515
  Serious: No
  Sender: FDA-Public Use
  Company Number: US-AMGEN-USASP2013064643

PATIENT
  Age: 65 Year
  Sex: Male

DRUGS (2)
  1. ENBREL [Suspect]
     Indication: RHEUMATOID ARTHRITIS
     Dosage: QWK
     Route: 065
     Dates: start: 20130906
  2. METHOTREXATE [Concomitant]
     Dosage: QWK, RECEIVED FOR 3 YEARS

REACTIONS (3)
  - Skin papilloma [Not Recovered/Not Resolved]
  - Rash macular [Recovered/Resolved]
  - Erythema [Not Recovered/Not Resolved]
